FAERS Safety Report 5320077-9 (Version None)
Quarter: 2007Q2

REPORT INFORMATION
  Report Type: 
  Country: None (occurrence: None)
  Receive Date: 20070509
  Receipt Date: 20070501
  Transmission Date: 20071010
  Serious: Yes (Death, Hospitalization, Other)
  Sender: FDA-Public Use
  Company Number: US-BRISTOL-MYERS SQUIBB COMPANY-13772421

PATIENT
  Age: 65 Year
  Sex: Male
  Weight: 94 kg

DRUGS (9)
  1. CYCLOPHOSPHAMIDE [Suspect]
     Indication: BREAST CANCER
  2. TAXOTERE [Suspect]
     Indication: BREAST CANCER
     Dates: start: 20070206, end: 20070206
  3. ADRIAMYCIN PFS [Suspect]
     Indication: BREAST CANCER
  4. EMEND [Concomitant]
  5. COMPAZINE [Concomitant]
     Indication: NAUSEA
  6. KYTRIL [Concomitant]
  7. LIPITOR [Concomitant]
  8. SINGULAIR [Concomitant]
  9. CARDIZEM [Concomitant]

REACTIONS (15)
  - ABDOMINAL PAIN [None]
  - CAECITIS [None]
  - CONDITION AGGRAVATED [None]
  - DIARRHOEA [None]
  - DIZZINESS [None]
  - DIZZINESS POSTURAL [None]
  - FULL BLOOD COUNT DECREASED [None]
  - HYPOTENSION [None]
  - LOSS OF CONSCIOUSNESS [None]
  - MALAISE [None]
  - NEUTROPENIA [None]
  - OXYGEN SATURATION DECREASED [None]
  - URINARY RETENTION [None]
  - VOMITING [None]
  - WHITE BLOOD CELL COUNT DECREASED [None]
